FAERS Safety Report 9548732 (Version 1)
Quarter: 2013Q2

REPORT INFORMATION
  Report Type: Spontaneous
  Country: US (occurrence: None)
  Receive Date: 20130627
  Receipt Date: 20130627
  Transmission Date: 20140414
  Serious: Yes (Other)
  Sender: FDA-Public Use
  Company Number: 1000044668

PATIENT
  Age: 77 Year
  Sex: Female

DRUGS (2)
  1. LINZESS [Suspect]
     Indication: IRRITABLE BOWEL SYNDROME
     Dosage: 145MCG (145 MCG, 1 IN 1 D), ORAL
     Route: 048
     Dates: start: 20130422
  2. CLONAZEPAM [Concomitant]

REACTIONS (5)
  - Constipation [None]
  - Abdominal discomfort [None]
  - Dyspnoea [None]
  - Dizziness [None]
  - Abdominal distension [None]
